FAERS Safety Report 5132868-8 (Version None)
Quarter: 2006Q4

REPORT INFORMATION
  Report Type: 
  Country: None (occurrence: None)
  Receive Date: 20061023
  Receipt Date: 20051207
  Transmission Date: 20070319
  Serious: Yes (Life-Threatening, Hospitalization, Other)
  Sender: FDA-Public Use
  Company Number: PHBS2005JP18169

PATIENT
  Age: 43 Year
  Sex: Male

DRUGS (4)
  1. NEORAL [Suspect]
     Indication: HEART TRANSPLANT
     Dosage: UNK, UNK
     Route: 048
     Dates: start: 19960315
  2. AZATHIOPRINE [Concomitant]
     Indication: HEART TRANSPLANT
     Dosage: UNK, UNK
     Dates: end: 19980101
  3. PREDNISOLONE [Suspect]
     Indication: HEART TRANSPLANT
     Dosage: UNK, UNK
     Route: 048
     Dates: start: 19960315
  4. CELLCEPT [Suspect]
     Indication: HEART TRANSPLANT
     Dosage: 2.5 G/D
     Route: 048
     Dates: start: 19980101

REACTIONS (9)
  - C-REACTIVE PROTEIN INCREASED [None]
  - DIABETES MELLITUS [None]
  - DRUG LEVEL FLUCTUATING [None]
  - ENDOCARDITIS [None]
  - MITRAL VALVE INCOMPETENCE [None]
  - PLASTIC SURGERY [None]
  - PYREXIA [None]
  - TRANSPLANT REJECTION [None]
  - TRICUSPID VALVE INCOMPETENCE [None]
